FAERS Safety Report 18473614 (Version 1)
Quarter: 2020Q4

REPORT INFORMATION
  Report Type: Spontaneous
  Country: US (occurrence: US)
  Receive Date: 20201104
  Receipt Date: 20201104
  Transmission Date: 20210114
  Serious: Yes (Other)
  Sender: FDA-Public Use
  Company Number: None

PATIENT
  Age: 37 Year
  Sex: Male
  Weight: 144.7 kg

DRUGS (2)
  1. AMLODIPINE [Suspect]
     Active Substance: AMLODIPINE BESYLATE
     Indication: ESSENTIAL HYPERTENSION
     Route: 048
     Dates: end: 20201101
  2. LOSARTAN  POTASSIUM 100MG [Suspect]
     Active Substance: LOSARTAN POTASSIUM
     Indication: ESSENTIAL HYPERTENSION
     Route: 048
     Dates: start: 20201014, end: 20201019

REACTIONS (5)
  - Respiratory tract irritation [None]
  - Nausea [None]
  - Fatigue [None]
  - Influenza like illness [None]
  - Pulmonary congestion [None]

NARRATIVE: CASE EVENT DATE: 20201014
